FAERS Safety Report 11609308 (Version 1)
Quarter: 2015Q4

REPORT INFORMATION
  Report Type: Other
  Country: CN (occurrence: CN)
  Receive Date: 20151007
  Receipt Date: 20151007
  Transmission Date: 20160304
  Serious: No
  Sender: FDA-Public Use
  Company Number: CN-TAKEDA-2015TJP003540

PATIENT
  Age: 36 Year
  Sex: Male
  Weight: 70 kg

DRUGS (3)
  1. COMPOUND GLUTAMINE GRANULES [Concomitant]
     Indication: GASTROOESOPHAGEAL REFLUX DISEASE
     Dosage: 0.67 G, TID
     Route: 048
     Dates: start: 20140225, end: 20140303
  2. TAKEPRON [Suspect]
     Active Substance: LANSOPRAZOLE
     Indication: GASTROOESOPHAGEAL REFLUX DISEASE
     Dosage: 30 MG, BID
     Route: 048
     Dates: start: 20140225, end: 20140303
  3. MOSAPRIDE [Suspect]
     Active Substance: MOSAPRIDE
     Indication: GASTROOESOPHAGEAL REFLUX DISEASE
     Dosage: 5 MG, TID
     Route: 048
     Dates: start: 20140225, end: 20140303

REACTIONS (3)
  - Eye pain [Recovering/Resolving]
  - Headache [Recovering/Resolving]
  - Eye swelling [Recovering/Resolving]

NARRATIVE: CASE EVENT DATE: 20140301
